FAERS Safety Report 24238206 (Version 5)
Quarter: 2024Q4

REPORT INFORMATION
  Report Type: Spontaneous
  Country: CO (occurrence: CO)
  Receive Date: 20240822
  Receipt Date: 20241031
  Transmission Date: 20250115
  Serious: Yes (Hospitalization, Other)
  Sender: LUNDBECK
  Company Number: CO-SA-SAC20240819000069

PATIENT

DRUGS (10)
  1. CLOBAZAM [Suspect]
     Active Substance: CLOBAZAM
     Indication: Epilepsy
     Dosage: 10 MG, TID
     Route: 048
     Dates: start: 202209
  2. CLOBAZAM [Suspect]
     Active Substance: CLOBAZAM
     Indication: Epilepsy with myoclonic-atonic seizures
     Dosage: 20 MG, TID
     Route: 048
     Dates: end: 202407
  3. VALPROIC ACID [Suspect]
     Active Substance: VALPROIC ACID
     Indication: Epileptic encephalopathy
     Dosage: UNK
  4. LACOSAMIDE [Suspect]
     Active Substance: LACOSAMIDE
     Indication: Product used for unknown indication
     Dosage: UNK
  5. CLONAZEPAM [Suspect]
     Active Substance: CLONAZEPAM
     Indication: Seizure
     Dosage: UNK
     Dates: start: 2024, end: 20240909
  6. NEVIOT [Concomitant]
     Indication: Product used for unknown indication
     Dosage: 2 CC EVERY 8 HOURS
  7. LAMOTRIGINE [Concomitant]
     Active Substance: LAMOTRIGINE
     Indication: Product used for unknown indication
     Dosage: UNK
  8. PHENOBARBITAL [Concomitant]
     Active Substance: PHENOBARBITAL
     Indication: Product used for unknown indication
  9. OXCARBAZEPINE [Concomitant]
     Active Substance: OXCARBAZEPINE
     Indication: Product used for unknown indication
  10. PHENYTOIN [Concomitant]
     Active Substance: PHENYTOIN
     Indication: Product used for unknown indication

REACTIONS (21)
  - Thrombocytopenia [Recovered/Resolved]
  - Coma [Not Recovered/Not Resolved]
  - Tonic convulsion [Not Recovered/Not Resolved]
  - Seizure [Not Recovered/Not Resolved]
  - Pneumonia [Recovered/Resolved]
  - Epilepsy [Not Recovered/Not Resolved]
  - Seizure [Recovered/Resolved]
  - Hallucination, visual [Recovering/Resolving]
  - Loss of personal independence in daily activities [Not Recovered/Not Resolved]
  - Hypertransaminasaemia [Not Recovered/Not Resolved]
  - Atonic seizures [Not Recovered/Not Resolved]
  - Lymphoid tissue hyperplasia [Not Recovered/Not Resolved]
  - Adenoidal hypertrophy [Not Recovered/Not Resolved]
  - Tonsillar hypertrophy [Not Recovered/Not Resolved]
  - Gait inability [Not Recovered/Not Resolved]
  - Muscular weakness [Recovered/Resolved with Sequelae]
  - Motor dysfunction [Not Recovered/Not Resolved]
  - Soliloquy [Not Recovered/Not Resolved]
  - Somnolence [Unknown]
  - Fatigue [Unknown]
  - Irritability [Not Recovered/Not Resolved]

NARRATIVE: CASE EVENT DATE: 20221201
